FAERS Safety Report 8558403-X (Version None)
Quarter: 2012Q3

REPORT INFORMATION
  Report Type: 
  Country: None (occurrence: None)
  Receive Date: 20120801
  Receipt Date: 20120723
  Transmission Date: 20120928
  Serious: Yes (Death)
  Sender: FDA-Public Use
  Company Number: IN-JHP PHARMACEUTICALS, LLC-JHP201200389

PATIENT

DRUGS (1)
  1. PITRESSIN [Suspect]
     Indication: SHOCK
     Dosage: 0.0005 TO 0.003 UNITS/KG/MIN
     Route: 042

REACTIONS (2)
  - HYPOTENSION [None]
  - OFF LABEL USE [None]
